FAERS Safety Report 18923519 (Version 3)
Quarter: 2021Q2

REPORT INFORMATION
  Report Type: Spontaneous
  Country: JP (occurrence: JP)
  Receive Date: 20210222
  Receipt Date: 20210414
  Transmission Date: 20210717
  Serious: Yes (Life-Threatening, Hospitalization, Other)
  Sender: FDA-Public Use
  Company Number: JP-DSJP-DSJ-2021-104946AA

PATIENT
  Age: 60 Year
  Sex: Male

DRUGS (8)
  1. FAMOTIDINE. [Concomitant]
     Active Substance: FAMOTIDINE
     Dosage: 20 MG, BID
     Route: 048
  2. FEBURIC [Concomitant]
     Active Substance: FEBUXOSTAT
     Dosage: 20 MG, QD
     Route: 048
  3. LIXIANA TABLETS [Suspect]
     Active Substance: EDOXABAN TOSYLATE
     Dosage: 60 MG, QD
     Route: 048
  4. NIPOLAZIN [Concomitant]
     Dosage: 3 MG, QD
     Route: 048
  5. LIXIANA TABLETS [Suspect]
     Active Substance: EDOXABAN TOSYLATE
     Indication: ATRIAL FIBRILLATION
     Dosage: 60 MG, QD
     Route: 048
  6. IOPROMIDE. [Suspect]
     Active Substance: IOPROMIDE
     Dosage: UNK
     Route: 065
     Dates: start: 20200601
  7. CALONAL [Concomitant]
     Active Substance: ACETAMINOPHEN
     Dosage: 300 MG, QD
     Route: 048
  8. GASTROM [Concomitant]
     Active Substance: ECABET SODIUM
     Dosage: 1.5 G, BID
     Route: 048

REACTIONS (6)
  - Renal pseudoaneurysm [Unknown]
  - Shock haemorrhagic [Recovered/Resolved]
  - Vascular pseudoaneurysm ruptured [Recovered/Resolved with Sequelae]
  - Cardiac arrest [Recovering/Resolving]
  - Nausea [Unknown]
  - Glomerulonephritis membranous [Unknown]

NARRATIVE: CASE EVENT DATE: 202006
